FAERS Safety Report 5493141-1 (Version None)
Quarter: 2007Q4

REPORT INFORMATION
  Report Type: 
  Country: None (occurrence: None)
  Receive Date: 20071022
  Receipt Date: 20071022
  Transmission Date: 20080405
  Serious: No
  Sender: FDA-Public Use
  Company Number: None

PATIENT
  Age: 55 Year
  Sex: Female
  Weight: 70 kg

DRUGS (2)
  1. AMLODIPINE [Suspect]
     Dosage: 10MG  QD  PO
     Route: 048
     Dates: start: 20070418, end: 20070425
  2. PLENDIL [Suspect]
     Dosage: 10MG  QD  PO
     Route: 048
     Dates: start: 20070507, end: 20070513

REACTIONS (7)
  - ABDOMINAL PAIN [None]
  - BLOOD PRESSURE INADEQUATELY CONTROLLED [None]
  - DIARRHOEA [None]
  - HEADACHE [None]
  - NAUSEA [None]
  - THERAPEUTIC RESPONSE UNEXPECTED WITH DRUG SUBSTITUTION [None]
  - VOMITING [None]
